FAERS Safety Report 5475036-2 (Version None)
Quarter: 2007Q3

REPORT INFORMATION
  Report Type: 
  Country: None (occurrence: None)
  Receive Date: 20070831
  Receipt Date: 20060911
  Transmission Date: 20080115
  Serious: Yes (Hospitalization)
  Sender: FDA-Public Use
  Company Number: 256081

PATIENT
  Age: 34 Year
  Sex: Female

DRUGS (1)
  1. NOVOLIN R [Suspect]
     Indication: GESTATIONAL DIABETES
     Dosage: 50 IU, INTRAVENOUS
     Route: 042
     Dates: start: 20050814

REACTIONS (2)
  - BLOOD GLUCOSE INCREASED [None]
  - DIABETIC KETOACIDOSIS [None]
